FAERS Safety Report 7319300-0 (Version None)
Quarter: 2011Q1

REPORT INFORMATION
  Report Type: 
  Country: None (occurrence: None)
  Receive Date: 20110228
  Receipt Date: 20100121
  Transmission Date: 20110831
  Serious: No
  Sender: FDA-Public Use
  Company Number: A0840735A

PATIENT
  Age: 51 Year
  Sex: Female

DRUGS (2)
  1. CLONAZEPAM [Concomitant]
  2. LAMICTAL [Suspect]
     Indication: BIPOLAR DISORDER
     Dosage: 400MG AT NIGHT
     Route: 048
     Dates: start: 20100101

REACTIONS (3)
  - GAIT DISTURBANCE [None]
  - FALL [None]
  - CONTUSION [None]
